FAERS Safety Report 18041817 (Version 4)
Quarter: 2020Q3

REPORT INFORMATION
  Report Type: Spontaneous
  Country: US (occurrence: US)
  Receive Date: 20200720
  Receipt Date: 20200923
  Transmission Date: 20201103
  Serious: Yes (Life-Threatening, Hospitalization)
  Sender: FDA-Public Use
  Company Number: US-TEVA-2020-US-1801642

PATIENT
  Age: 30 Year
  Sex: Female

DRUGS (7)
  1. SPRINTEC [Suspect]
     Active Substance: ETHINYL ESTRADIOL\NORGESTIMATE
     Indication: ORAL CONTRACEPTION
     Dosage: 0.250 MG/0.035 MG
     Route: 048
     Dates: start: 20191107, end: 20200701
  2. PANTOPRAZOLE [Concomitant]
     Active Substance: PANTOPRAZOLE
  3. IRON [Concomitant]
     Active Substance: IRON
  4. VITAMIN D [Concomitant]
     Active Substance: VITAMIN D NOS
  5. PRAVASTATIN. [Concomitant]
     Active Substance: PRAVASTATIN
  6. SINGULAIR [Concomitant]
     Active Substance: MONTELUKAST SODIUM
  7. ELIQUIS [Concomitant]
     Active Substance: APIXABAN
     Indication: ANTICOAGULANT THERAPY

REACTIONS (3)
  - Chest pain [Recovered/Resolved]
  - Pulmonary embolism [Not Recovered/Not Resolved]
  - Dyspnoea [Recovered/Resolved]

NARRATIVE: CASE EVENT DATE: 202006
